FAERS Safety Report 8988968 (Version 2)
Quarter: 2013Q1

REPORT INFORMATION
  Report Type: Spontaneous
  Country: BR (occurrence: BR)
  Receive Date: 20121227
  Receipt Date: 20130104
  Transmission Date: 20140127
  Serious: Yes (Other)
  Sender: FDA-Public Use
  Company Number: BR-PFIZER INC-2012329745

PATIENT
  Age: 37 Year
  Sex: Female
  Weight: 58 kg

DRUGS (2)
  1. TECTA [Suspect]
     Indication: GASTROOESOPHAGITIS
     Dosage: 40 MG, DAILY
     Route: 048
     Dates: start: 20121112, end: 20121119
  2. METRONIDAZOLE [Concomitant]
     Indication: FUNGAL INFECTION
     Dosage: UNK
     Route: 067
     Dates: start: 20121109, end: 20121114

REACTIONS (6)
  - Vaginal haemorrhage [Recovered/Resolved]
  - Pelvic pain [Recovered/Resolved]
  - Adnexa uteri pain [Recovered/Resolved]
  - Uterine pain [Recovered/Resolved]
  - Renal pain [Recovered/Resolved]
  - Headache [Recovered/Resolved]
